FAERS Safety Report 10449236 (Version 1)
Quarter: 2014Q3

REPORT INFORMATION
  Report Type: Spontaneous
  Country: US (occurrence: None)
  Receive Date: 20140911
  Receipt Date: 20140911
  Transmission Date: 20150326
  Serious: Yes (Life-Threatening, Hospitalization, Other)
  Sender: FDA-Public Use
  Company Number: None

PATIENT
  Age: 76 Year
  Sex: Male
  Weight: 70.31 kg

DRUGS (6)
  1. FISH OIL [Concomitant]
     Active Substance: FISH OIL
  2. XARELTO [Suspect]
     Active Substance: RIVAROXABAN
     Indication: CEREBROVASCULAR ACCIDENT
     Dosage: 1 PILL   DAILY AM  BY MONTH?STRENGTH:  6 AT 10MG?              13 AT 20MG
     Dates: start: 20140125, end: 20140212
  3. VITAMIN B12 [Concomitant]
     Active Substance: CYANOCOBALAMIN
  4. XARELTO [Suspect]
     Active Substance: RIVAROXABAN
     Indication: ANTICOAGULANT THERAPY
     Dosage: 1 PILL   DAILY AM  BY MONTH?STRENGTH:  6 AT 10MG?              13 AT 20MG
     Dates: start: 20140125, end: 20140212
  5. NIACIN. [Concomitant]
     Active Substance: NIACIN
  6. XARELTO [Suspect]
     Active Substance: RIVAROXABAN
     Indication: PROPHYLAXIS
     Dosage: 1 PILL   DAILY AM  BY MONTH?STRENGTH:  6 AT 10MG?              13 AT 20MG
     Dates: start: 20140125, end: 20140212

REACTIONS (4)
  - Urinary tract disorder [None]
  - Blood urine [None]
  - Overdose [None]
  - Renal pain [None]

NARRATIVE: CASE EVENT DATE: 20140125
